FAERS Safety Report 7124579-4 (Version None)
Quarter: 2010Q4

REPORT INFORMATION
  Report Type: 
  Country: None (occurrence: None)
  Receive Date: 20101123
  Receipt Date: 20101123
  Transmission Date: 20110411
  Serious: No
  Sender: FDA-Public Use
  Company Number: None

PATIENT
  Age: 67 Year
  Sex: Male

DRUGS (1)
  1. DOXYCYCLINE [Suspect]
     Indication: LIVER DISORDER
     Dates: start: 20080924, end: 20090324

REACTIONS (2)
  - FATIGUE [None]
  - HEPATITIS ACUTE [None]
